FAERS Safety Report 16582765 (Version 1)
Quarter: 2019Q3

REPORT INFORMATION
  Report Type: Report from Study
  Country: US (occurrence: US)
  Receive Date: 20190717
  Receipt Date: 20190717
  Transmission Date: 20191004
  Serious: Yes (Other)
  Sender: FDA-Public Use
  Company Number: US-GILEAD-2019-0413388

PATIENT
  Age: 59 Year
  Sex: Female
  Weight: 77.1 kg

DRUGS (8)
  1. AMBRISENTAN [Suspect]
     Active Substance: AMBRISENTAN
     Indication: PULMONARY HYPERTENSION
  2. FLUTICASONE PROPRIONATE [Concomitant]
     Active Substance: FLUTICASONE PROPIONATE
  3. SYMBICORT [Concomitant]
     Active Substance: BUDESONIDE\FORMOTEROL FUMARATE DIHYDRATE
  4. SILDENAFIL. [Concomitant]
     Active Substance: SILDENAFIL
  5. LISINOPRIL. [Concomitant]
     Active Substance: LISINOPRIL
  6. AMBRISENTAN [Suspect]
     Active Substance: AMBRISENTAN
     Indication: IDIOPATHIC PULMONARY FIBROSIS
     Dosage: 5 MG, QD
     Route: 065
     Dates: start: 20180330
  7. FUROSEMIDE. [Concomitant]
     Active Substance: FUROSEMIDE
  8. PRAVASTATIN. [Concomitant]
     Active Substance: PRAVASTATIN

REACTIONS (3)
  - Blister [Not Recovered/Not Resolved]
  - Skin disorder [Not Recovered/Not Resolved]
  - Pulmonary hypertension [Unknown]

NARRATIVE: CASE EVENT DATE: 20181011
